FAERS Safety Report 7851650-1 (Version None)
Quarter: 2011Q4

REPORT INFORMATION
  Report Type: 
  Country: None (occurrence: None)
  Receive Date: 20111026
  Receipt Date: 20111012
  Transmission Date: 20120403
  Serious: Yes (Hospitalization, Disabling)
  Sender: FDA-Public Use
  Company Number: PHHY2009JP19974

PATIENT
  Sex: Female
  Weight: 67 kg

DRUGS (11)
  1. SIMULECT [Suspect]
     Indication: RENAL TRANSPLANT
     Dosage: 20 MG DAILY
     Route: 042
     Dates: start: 20060621, end: 20060621
  2. SIMULECT [Suspect]
     Dosage: 20 MG DAILY
     Route: 042
     Dates: start: 20060625, end: 20060625
  3. PROGRAF [Suspect]
     Indication: RENAL TRANSPLANT
     Dosage: 10 MG / DAY, THEN TAPERED
     Route: 048
     Dates: start: 20060616, end: 20060621
  4. PROGRAF [Suspect]
     Dosage: 4 MG/DAY
     Dates: start: 20060711
  5. PREDNISOLONE [Suspect]
     Indication: RENAL TRANSPLANT
     Dosage: 50 MG/DAY, THEN TAPERED
     Route: 048
     Dates: start: 20060615
  6. ACETAMINOPHEN [Suspect]
     Dosage: 4 DF IN TOTAL
     Route: 048
     Dates: start: 20060626, end: 20060628
  7. MYCOPHENOLATE MOFETIL (CELLCEPT) [Suspect]
     Indication: RENAL TRANSPLANT
     Dosage: 1500 MG/ DAY
     Route: 048
     Dates: start: 20060615
  8. SOLU-MEDROL [Concomitant]
     Indication: RENAL TRANSPLANT
     Dosage: 500 MG, UNK
     Route: 042
     Dates: start: 20060621, end: 20060621
  9. NEORAL [Suspect]
     Indication: RENAL TRANSPLANT
     Dosage: 550 MG/ DAY, THEN TAPERED
     Route: 048
     Dates: start: 20060622, end: 20060710
  10. RABEPRAZOLE SODIUM [Concomitant]
     Indication: PROPHYLAXIS
     Dosage: 1 DF, UNK
     Route: 048
     Dates: start: 20060625
  11. ADALAT [Concomitant]
     Indication: HYPERTENSION
     Dosage: 40 MG, UNK
     Route: 048
     Dates: start: 20060625

REACTIONS (6)
  - HYDRONEPHROSIS [None]
  - ANURIA [None]
  - NEPHROPATHY TOXIC [None]
  - URINE OUTPUT DECREASED [None]
  - RENAL TUBULAR DISORDER [None]
  - URETERIC STENOSIS [None]
